FAERS Safety Report 24253815 (Version 1)
Quarter: 2024Q3

REPORT INFORMATION
  Report Type: Spontaneous
  Country: US (occurrence: US)
  Receive Date: 20240827
  Receipt Date: 20240827
  Transmission Date: 20241016
  Serious: No
  Sender: ALEXION PHARMACEUTICALS
  Company Number: US-AstraZeneca-CH-00688097A

PATIENT
  Sex: Female

DRUGS (2)
  1. VOYDEYA [Suspect]
     Active Substance: DANICOPAN
     Indication: Paroxysmal nocturnal haemoglobinuria
     Dosage: 150 MILLIGRAM, TID
     Route: 048
     Dates: start: 20240531
  2. ULTOMIRIS [Suspect]
     Active Substance: RAVULIZUMAB-CWVZ
     Indication: Paroxysmal nocturnal haemoglobinuria
     Dosage: UNK
     Route: 065

REACTIONS (3)
  - Fatigue [Unknown]
  - Asthenia [Unknown]
  - Headache [Unknown]
